FAERS Safety Report 15620143 (Version 1)
Quarter: 2018Q4

REPORT INFORMATION
  Report Type: Other
  Country: ES (occurrence: ES)
  Receive Date: 20181115
  Receipt Date: 20181115
  Transmission Date: 20190205
  Serious: Yes (Life-Threatening, Hospitalization, Other)
  Sender: FDA-Public Use
  Company Number: ES-APOTEX-2018AP024247

PATIENT
  Age: 70 Year
  Sex: Male

DRUGS (6)
  1. CAPECITABINE. [Interacting]
     Active Substance: CAPECITABINE
     Indication: COLON CANCER
     Dosage: UNK UNK, QD
     Route: 048
     Dates: start: 20170811
  2. TRANKIMAZIN [Concomitant]
     Active Substance: ALPRAZOLAM
     Indication: ANXIETY
     Dosage: 0.25 MG, QD
     Route: 048
     Dates: start: 20170529, end: 20171004
  3. OXALIPLATIN. [Interacting]
     Active Substance: OXALIPLATIN
     Indication: COLON CANCER
     Dosage: UNK
     Route: 042
     Dates: start: 20170811, end: 20170922
  4. LORMETAZEPAM [Interacting]
     Active Substance: LORMETAZEPAM
     Indication: ANXIETY
     Dosage: 1 MG, QD
     Route: 048
     Dates: start: 20130621, end: 20171004
  5. HIDROSALURETIL [Interacting]
     Active Substance: HYDROCHLOROTHIAZIDE
     Indication: HYPERTENSION
     Dosage: 25 MG, QD
     Route: 048
     Dates: start: 20151203, end: 20171004
  6. SERTRALINE [Suspect]
     Active Substance: SERTRALINE HYDROCHLORIDE
     Indication: ANXIETY
     Dosage: 100 MG, QD
     Route: 048
     Dates: start: 20170927, end: 20171004

REACTIONS (2)
  - Hyponatraemia [Recovered/Resolved]
  - Hypokalaemia [Recovered/Resolved]

NARRATIVE: CASE EVENT DATE: 201710
